FAERS Safety Report 6441254-X (Version None)
Quarter: 2009Q4

REPORT INFORMATION
  Report Type: 
  Country: None (occurrence: None)
  Receive Date: 20091116
  Receipt Date: 20091104
  Transmission Date: 20100525
  Serious: Yes (Other)
  Sender: FDA-Public Use
  Company Number: BR-ELI_LILLY_AND_COMPANY-BR200911001176

PATIENT
  Sex: Male
  Weight: 80 kg

DRUGS (3)
  1. FORTEO [Suspect]
     Indication: BONE DISORDER
     Dosage: 20 UG, DAILY (1/D)
     Route: 058
     Dates: start: 20090401
  2. DEPAKOTE [Concomitant]
     Indication: CONVULSION
     Dosage: 500 MG, 3/D
     Route: 048
     Dates: start: 20080101
  3. SERTRALINA [Concomitant]
     Indication: ANTIDEPRESSANT THERAPY
     Dosage: 50 MG, DAILY (1/D)
     Route: 048
     Dates: start: 20090901

REACTIONS (2)
  - OFF LABEL USE [None]
  - THYROID CANCER [None]
